FAERS Safety Report 11290620 (Version 1)
Quarter: 2015Q3

REPORT INFORMATION
  Report Type: Spontaneous
  Country: US (occurrence: None)
  Receive Date: 20150720
  Receipt Date: 20150720
  Transmission Date: 20151125
  Serious: Yes (Life-Threatening, Hospitalization)
  Sender: FDA-Public Use
  Company Number: None

PATIENT
  Age: 61 Year
  Sex: Male

DRUGS (1)
  1. NOVILUMAB [Suspect]
     Active Substance: NIVOLUMAB

REACTIONS (2)
  - Refusal of treatment by patient [None]
  - Meningoencephalitis herpetic [None]

NARRATIVE: CASE EVENT DATE: 20150717
